FAERS Safety Report 4489553-5 (Version None)
Quarter: 2004Q4

REPORT INFORMATION
  Report Type: 
  Country: None (occurrence: None)
  Receive Date: 20041026
  Receipt Date: 20041012
  Transmission Date: 20050328
  Serious: Yes (Hospitalization, Other)
  Sender: FDA-Public Use
  Company Number: FR_041004987

PATIENT
  Age: 64 Year
  Sex: Female
  Weight: 76 kg

DRUGS (4)
  1. GEMZAR [Suspect]
     Indication: BREAST CANCER
     Dosage: 1700 MG/1 OTHER
  2. CAELYX (DOXORUBICIN HYDROCHLORIDE) [Concomitant]
  3. KYTRIL [Concomitant]
  4. ZOMETA [Concomitant]

REACTIONS (4)
  - ALOPECIA [None]
  - DISEASE RECURRENCE [None]
  - DRUG INTERACTION [None]
  - GENERAL PHYSICAL HEALTH DETERIORATION [None]
